FAERS Safety Report 20419406 (Version 7)
Quarter: 2022Q4

REPORT INFORMATION
  Report Type: Other
  Country: LB (occurrence: LB)
  Receive Date: 20220203
  Receipt Date: 20221104
  Transmission Date: 20230112
  Serious: Yes (Hospitalization, Other)
  Sender: FDA-Public Use
  Company Number: LB-002147023-NVSC2021LB262490

PATIENT
  Age: 56 Year
  Sex: Male
  Weight: 100 kg

DRUGS (12)
  1. LUCENTIS [Suspect]
     Active Substance: RANIBIZUMAB
     Indication: Diabetic retinal oedema
     Dosage: 20 MG/ML
     Route: 031
     Dates: start: 20210312, end: 20210511
  2. LUCENTIS [Suspect]
     Active Substance: RANIBIZUMAB
     Dosage: 10 MG/ML
     Route: 031
     Dates: start: 20210312
  3. LUCENTIS [Suspect]
     Active Substance: RANIBIZUMAB
     Dosage: SOLUTION FOR INJECTION
     Route: 031
     Dates: start: 20210611
  4. LUCENTIS [Suspect]
     Active Substance: RANIBIZUMAB
     Dosage: UNK, (RIGHT EYE)
     Route: 031
     Dates: start: 20220217
  5. LUCENTIS [Suspect]
     Active Substance: RANIBIZUMAB
     Dosage: UNK, (LEFT EYE)
     Route: 031
     Dates: start: 20220209
  6. LUCENTIS [Suspect]
     Active Substance: RANIBIZUMAB
     Dosage: 20 MILLIGRAM PER MILLILITRE (BOTH EYES)
     Route: 031
     Dates: end: 20210511
  7. FENOFIBRATE [Concomitant]
     Active Substance: FENOFIBRATE
     Indication: Product used for unknown indication
     Dosage: UNK
     Route: 065
  8. ATACAND [Concomitant]
     Active Substance: CANDESARTAN CILEXETIL
     Indication: Product used for unknown indication
     Dosage: UNK
     Route: 065
  9. BISOPROLOL FUMARATE [Concomitant]
     Active Substance: BISOPROLOL FUMARATE
     Indication: Product used for unknown indication
     Dosage: UNK
     Route: 065
  10. GLUCOPHAGE [Concomitant]
     Active Substance: METFORMIN HYDROCHLORIDE
     Indication: Product used for unknown indication
     Dosage: UNK
  11. JARDIANCE [Concomitant]
     Active Substance: EMPAGLIFLOZIN
     Indication: Product used for unknown indication
     Dosage: UNK
     Route: 065
  12. LASIX [Concomitant]
     Active Substance: FUROSEMIDE
     Indication: Product used for unknown indication
     Route: 065

REACTIONS (17)
  - Oedema peripheral [Recovered/Resolved]
  - Blood disorder [Not Recovered/Not Resolved]
  - Pulmonary oedema [Recovered/Resolved]
  - Gait disturbance [Not Recovered/Not Resolved]
  - Renal disorder [Not Recovered/Not Resolved]
  - Visual acuity reduced [Not Recovered/Not Resolved]
  - Myelosuppression [Not Recovered/Not Resolved]
  - Pericardial effusion [Recovered/Resolved]
  - Dyspnoea [Recovered/Resolved]
  - Device related infection [Not Recovered/Not Resolved]
  - Generalised oedema [Recovered/Resolved]
  - Renal impairment [Not Recovered/Not Resolved]
  - Vitreous floaters [Not Recovered/Not Resolved]
  - Angioedema [Not Recovered/Not Resolved]
  - Localised oedema [Recovered/Resolved]
  - Drug ineffective [Unknown]
  - Visual impairment [Not Recovered/Not Resolved]

NARRATIVE: CASE EVENT DATE: 20210601
